FAERS Safety Report 7315529-6 (Version None)
Quarter: 2011Q1

REPORT INFORMATION
  Report Type: 
  Country: None (occurrence: None)
  Receive Date: 20110218
  Receipt Date: 20110218
  Transmission Date: 20110831
  Serious: Yes (Other)
  Sender: FDA-Public Use
  Company Number: None

PATIENT
  Age: 57 Year
  Sex: Male
  Weight: 149.8685 kg

DRUGS (1)
  1. TRAMADOL 50 MG [Suspect]
     Indication: ARTHRALGIA
     Dosage: 50MG PO 1-2 TABS PO Q6HR
     Route: 048
     Dates: start: 20040602

REACTIONS (3)
  - URTICARIA [None]
  - DYSPNOEA [None]
  - THROAT TIGHTNESS [None]
